FAERS Safety Report 4379931-7 (Version None)
Quarter: 2004Q2

REPORT INFORMATION
  Report Type: 
  Country: None (occurrence: None)
  Receive Date: 20040614
  Receipt Date: 20040602
  Transmission Date: 20050107
  Serious: No
  Sender: FDA-Public Use
  Company Number: 04P-167-0262915-00

PATIENT
  Age: 20 Year
  Sex: Female
  Weight: 57.2 kg

DRUGS (4)
  1. BIAXIN [Suspect]
     Indication: OTITIS MEDIA
     Dosage: 250 MG, 2 IN 1 D, PER ORAL
     Route: 048
     Dates: start: 20040515, end: 20040516
  2. PROCHLORPERAZINE [Concomitant]
  3. IBUPROFEN [Concomitant]
  4. OTOMIZE [Concomitant]

REACTIONS (5)
  - CONFUSIONAL STATE [None]
  - HYPERVENTILATION [None]
  - INTENTIONAL SELF-INJURY [None]
  - PARANOIA [None]
  - PSYCHOTIC DISORDER [None]
